FAERS Safety Report 18442243 (Version 2)
Quarter: 2021Q4

REPORT INFORMATION
  Report Type: Spontaneous
  Country: US (occurrence: None)
  Receive Date: 20201029
  Receipt Date: 20211104
  Transmission Date: 20220303
  Serious: No
  Sender: FDA-Public Use
  Company Number: US-UNICHEM PHARMACEUTICALS (USA) INC-UCM202004-000456

PATIENT
  Age: 56 Year
  Sex: Female
  Weight: 68.03 kg

DRUGS (7)
  1. LAMOTRIGINE [Suspect]
     Active Substance: LAMOTRIGINE
     Indication: Bipolar disorder
     Dosage: BEFORE THE PATIENT WAS TAKING ONCE A DAY BUT NOW AS SUGGESTED BY HER PHYSICIAN SHE WAS TAKING TWICE
     Dates: start: 2007
  2. Ceplex [Concomitant]
     Indication: Sebaceous gland infection
     Dosage: 1000 MG AT MORNING AND 1000 MG AT EVENING.
  3. Suboxen [Concomitant]
     Indication: Spinal stenosis
  4. ADDERALL [Concomitant]
     Active Substance: AMPHETAMINE ASPARTATE\AMPHETAMINE SULFATE\DEXTROAMPHETAMINE SACCHARATE\DEXTROAMPHETAMINE SULFATE
     Indication: Product used for unknown indication
  5. RISPERIDONE [Concomitant]
     Active Substance: RISPERIDONE
     Indication: Product used for unknown indication
     Dosage: UNKNOWN
  6. LORAZEPAM [Concomitant]
     Active Substance: LORAZEPAM
     Indication: Product used for unknown indication
     Dosage: UNKNOWN
  7. CELEXA [Concomitant]
     Active Substance: CITALOPRAM HYDROBROMIDE
     Indication: Product used for unknown indication
     Dosage: UNKNOWN

REACTIONS (2)
  - Visual impairment [Unknown]
  - Nystagmus [Not Recovered/Not Resolved]

NARRATIVE: CASE EVENT DATE: 20191213
